FAERS Safety Report 6192150-7 (Version None)
Quarter: 2009Q2

REPORT INFORMATION
  Report Type: 
  Country: None (occurrence: None)
  Receive Date: 20090515
  Receipt Date: 20090507
  Transmission Date: 20091009
  Serious: Yes (Other)
  Sender: FDA-Public Use
  Company Number: BR-ABBOTT-09P-020-0498236-00

PATIENT
  Sex: Female

DRUGS (10)
  1. NOCTAL [Suspect]
     Indication: DEPRESSION
     Route: 048
     Dates: start: 19860101, end: 20080101
  2. NOCTAL [Suspect]
     Indication: INSOMNIA
  3. LEXOTAN [Concomitant]
     Indication: TACHYCARDIA
     Dates: start: 19860101
  4. LEXOTAN [Concomitant]
  5. PURAN T4 [Concomitant]
     Indication: THYROID DISORDER
     Route: 048
  6. PURAN T4 [Concomitant]
     Indication: THYROIDECTOMY
  7. HIDANTAL [Concomitant]
     Indication: EPILEPSY
     Route: 048
  8. CONJUGATED ESTROGENS [Concomitant]
     Indication: HORMONE REPLACEMENT THERAPY
     Dates: start: 19890101
  9. UNKNOWN MEDICATION [Concomitant]
     Indication: OSTEOPOROSIS
  10. ALENDRONATE [Concomitant]
     Indication: OSTEOPOROSIS

REACTIONS (5)
  - ALOPECIA [None]
  - METASTASIS [None]
  - OSTEOPOROSIS [None]
  - THYROID DISORDER [None]
  - THYROID NEOPLASM [None]
